FAERS Safety Report 5202760-9 (Version None)
Quarter: 2007Q1

REPORT INFORMATION
  Report Type: 
  Country: None (occurrence: None)
  Receive Date: 20070109
  Receipt Date: 20061229
  Transmission Date: 20070707
  Serious: Yes (Other)
  Sender: FDA-Public Use
  Company Number: US-PFIZER INC-2007001196

PATIENT
  Sex: Female
  Weight: 81.6 kg

DRUGS (5)
  1. LYRICA [Suspect]
     Indication: COMPLEX REGIONAL PAIN SYNDROME
  2. DIPRIVAN [Suspect]
     Indication: ANAESTHESIA
     Dates: start: 20060101, end: 20060101
  3. REGLAN [Suspect]
     Indication: TREMOR
  4. ATIVAN [Suspect]
     Indication: TREMOR
     Route: 042
  5. ATIVAN [Suspect]
     Route: 048

REACTIONS (19)
  - ANXIETY [None]
  - BLOOD PRESSURE FLUCTUATION [None]
  - COLONIC POLYP [None]
  - CONDITION AGGRAVATED [None]
  - DISORIENTATION [None]
  - DIZZINESS [None]
  - DYSPNOEA [None]
  - HALLUCINATION [None]
  - HEADACHE [None]
  - HEART RATE INCREASED [None]
  - HERNIA [None]
  - INSOMNIA [None]
  - NAUSEA [None]
  - OEDEMA PERIPHERAL [None]
  - PALPITATIONS [None]
  - SYNCOPE [None]
  - TREMOR [None]
  - VISION BLURRED [None]
  - WEIGHT DECREASED [None]
